FAERS Safety Report 8136075-6 (Version None)
Quarter: 2012Q1

REPORT INFORMATION
  Report Type: 
  Country: None (occurrence: None)
  Receive Date: 20120214
  Receipt Date: 20120207
  Transmission Date: 20120608
  Serious: Yes (Hospitalization)
  Sender: FDA-Public Use
  Company Number: US-VERTEX PHARMACEUTICALS INC.-AE-2012-001993

PATIENT
  Sex: Male

DRUGS (6)
  1. INCIVEK [Suspect]
     Route: 048
     Dates: start: 20120108
  2. PEGASYS [Concomitant]
     Route: 058
     Dates: start: 20120108
  3. RIBAVIRIN [Concomitant]
     Indication: HEPATITIS C
     Dates: start: 20110101, end: 20111001
  4. INCIVEK [Suspect]
     Indication: HEPATITIS C
     Route: 048
     Dates: start: 20110101, end: 20111001
  5. RIBAVIRIN [Concomitant]
     Route: 048
     Dates: start: 20120108
  6. PEGASYS [Concomitant]
     Indication: HEPATITIS C
     Dates: start: 20110101, end: 20111001

REACTIONS (2)
  - INJECTION SITE INDURATION [None]
  - INFECTION [None]
